FAERS Safety Report 15394725 (Version 3)
Quarter: 2018Q4

REPORT INFORMATION
  Report Type: Report from Study
  Country: US (occurrence: US)
  Receive Date: 20180918
  Receipt Date: 20181225
  Transmission Date: 20190204
  Serious: Yes (Death, Hospitalization)
  Sender: FDA-Public Use
  Company Number: US-ROCHE-2180716

PATIENT
  Age: 78 Year
  Sex: Female
  Weight: 66.5 kg

DRUGS (1)
  1. ATEZOLIZUMAB. [Suspect]
     Active Substance: ATEZOLIZUMAB
     Indication: COLORECTAL CANCER METASTATIC
     Dosage: 60 MINUTES ON DAY 1 (CYCLE 1), 30 MINUTES ON DAY 1 (CYCLE 2)
     Route: 042
     Dates: start: 20180712, end: 20180726

REACTIONS (5)
  - Headache [Unknown]
  - Vision blurred [Recovered/Resolved]
  - Death [Fatal]
  - Pleural effusion [Unknown]
  - Pneumonitis [Unknown]

NARRATIVE: CASE EVENT DATE: 20180728
